FAERS Safety Report 7464984-X (Version None)
Quarter: 2011Q2

REPORT INFORMATION
  Report Type: 
  Country: None (occurrence: None)
  Receive Date: 20110505
  Receipt Date: 20110505
  Transmission Date: 20111010
  Serious: Yes (Other)
  Sender: FDA-Public Use
  Company Number: None

PATIENT
  Age: 57 Year
  Sex: Male

DRUGS (2)
  1. GAMMAGARD [Suspect]
     Indication: POLYNEUROPATHY
     Dosage: 1000ML (100GM) PER RATE PROTOCAL IV
     Route: 042
     Dates: start: 20060101
  2. SODIUM CHLORIDE INJ [Concomitant]

REACTIONS (5)
  - ERUCTATION [None]
  - MALAISE [None]
  - ABDOMINAL PAIN UPPER [None]
  - INFUSION RELATED REACTION [None]
  - INFUSION SITE URTICARIA [None]
